FAERS Safety Report 24346611 (Version 1)
Quarter: 2024Q3

REPORT INFORMATION
  Report Type: Report from Study
  Country: US (occurrence: US)
  Receive Date: 20240921
  Receipt Date: 20240921
  Transmission Date: 20241017
  Serious: Yes (Other)
  Sender: None
  Company Number: US-ABBVIE-5930106

PATIENT
  Age: 51 Year
  Sex: Female

DRUGS (1)
  1. Skyrizi [Suspect]
     Route: 058

REACTIONS (1)
  - Surgery [Unknown]

NARRATIVE: CASE EVENT DATE: 20231101
